FAERS Safety Report 5961325-1 (Version None)
Quarter: 2008Q4

REPORT INFORMATION
  Report Type: 
  Country: None (occurrence: None)
  Receive Date: 20081121
  Receipt Date: 20081113
  Transmission Date: 20090506
  Serious: Yes (Other)
  Sender: FDA-Public Use
  Company Number: US-AMGEN-QUU317489

PATIENT
  Sex: Female

DRUGS (2)
  1. ENBREL [Suspect]
     Indication: RHEUMATOID ARTHRITIS
     Route: 058
     Dates: start: 19981201
  2. ENBREL [Suspect]
     Indication: OSTEOARTHRITIS

REACTIONS (8)
  - BLOOD TEST ABNORMAL [None]
  - COLLAPSE OF LUNG [None]
  - DRUG INEFFECTIVE [None]
  - GASTROINTESTINAL ULCER HAEMORRHAGE [None]
  - IRON DEFICIENCY ANAEMIA [None]
  - OSTEOARTHRITIS [None]
  - RED BLOOD CELL COUNT DECREASED [None]
  - RHEUMATOID ARTHRITIS [None]
